FAERS Safety Report 21509743 (Version 1)
Quarter: 2022Q4

REPORT INFORMATION
  Report Type: Spontaneous
  Country: JP (occurrence: JP)
  Receive Date: 20221026
  Receipt Date: 20221026
  Transmission Date: 20230113
  Serious: No
  Sender: FDA-Public Use
  Company Number: JP-JAZZ-2021-JP-022508

PATIENT
  Age: 54 Year
  Sex: Male
  Weight: 46 kg

DRUGS (3)
  1. DEFITELIO [Suspect]
     Active Substance: DEFIBROTIDE SODIUM
     Indication: Venoocclusive liver disease
     Dosage: 17 MILLIGRAM/KILOGRAM, QD
     Route: 042
     Dates: start: 20200924, end: 20201117
  2. DEFITELIO [Suspect]
     Active Substance: DEFIBROTIDE SODIUM
     Dosage: 9 MILLIGRAM/KILOGRAM, QD
     Route: 042
     Dates: start: 20201118, end: 20201222
  3. THROMBOMODULIN ALFA [Concomitant]
     Active Substance: THROMBOMODULIN ALFA
     Indication: Product used for unknown indication
     Dosage: UNK
     Dates: start: 20200921, end: 20200926

REACTIONS (3)
  - Epistaxis [Recovered/Resolved]
  - Drug ineffective [Unknown]
  - Off label use [Unknown]

NARRATIVE: CASE EVENT DATE: 20201005
